FAERS Safety Report 10064372 (Version 1)
Quarter: 2014Q2

REPORT INFORMATION
  Report Type: Spontaneous
  Country: FR (occurrence: FR)
  Receive Date: 20140408
  Receipt Date: 20140408
  Transmission Date: 20141212
  Serious: Yes (Other)
  Sender: FDA-Public Use
  Company Number: FR-TEVA-473063ISR

PATIENT
  Sex: Female

DRUGS (5)
  1. ESTREVA 0.1 % [Suspect]
     Indication: MENOPAUSAL SYMPTOMS
     Dosage: 2 DOSAGE FORMS DAILY;
     Route: 003
  2. ESTREVA 0.1 % [Suspect]
     Route: 003
  3. ESTREVA 0.1 % [Suspect]
     Route: 003
  4. UTROGESTAN [Concomitant]
  5. UTROGESTAN [Concomitant]

REACTIONS (4)
  - Off label use [Unknown]
  - Off label use [Unknown]
  - Underdose [Unknown]
  - Postmenopausal haemorrhage [Not Recovered/Not Resolved]
